FAERS Safety Report 4763294-9 (Version None)
Quarter: 2005Q3

REPORT INFORMATION
  Report Type: 
  Country: None (occurrence: None)
  Receive Date: 20050902
  Receipt Date: 20050823
  Transmission Date: 20060218
  Serious: Yes (Death)
  Sender: FDA-Public Use
  Company Number: 2005-DE-03379GD

PATIENT
  Sex: 0

DRUGS (2)
  1. ALBUTEROL SULFATE HFA [Suspect]
     Indication: CHRONIC OBSTRUCTIVE PULMONARY DISEASE
     Dosage: SEE IMAGE
     Route: 055
  2. PREDNISONE [Concomitant]
     Indication: CHRONIC OBSTRUCTIVE PULMONARY DISEASE
     Dosage: 30 MG , PO
     Route: 048

REACTIONS (1)
  - RENAL FAILURE [None]
